FAERS Safety Report 20102514 (Version 4)
Quarter: 2021Q4

REPORT INFORMATION
  Report Type: Report from Study
  Country: US (occurrence: US)
  Receive Date: 20211123
  Receipt Date: 20211223
  Transmission Date: 20220303
  Serious: Yes (Other)
  Sender: FDA-Public Use
  Company Number: US-GLAXOSMITHKLINE-US2021231031

PATIENT
  Age: 68 Year
  Sex: Female
  Weight: 68.934 kg

DRUGS (2)
  1. NIRAPARIB [Suspect]
     Active Substance: NIRAPARIB
     Indication: Ovarian cancer
     Dosage: 200 MG, QD (PM WITHOUT FOOD)
     Route: 048
     Dates: start: 20211102
  2. NIRAPARIB [Suspect]
     Active Substance: NIRAPARIB
     Dosage: 200 MG, QD

REACTIONS (7)
  - Renal impairment [Not Recovered/Not Resolved]
  - Musculoskeletal chest pain [Recovering/Resolving]
  - Fluid intake reduced [Unknown]
  - Myalgia [Recovered/Resolved]
  - Low density lipoprotein increased [Not Recovered/Not Resolved]
  - Blood cholesterol increased [Unknown]
  - Blood creatinine increased [Unknown]

NARRATIVE: CASE EVENT DATE: 20211101
